FAERS Safety Report 6983883-0 (Version None)
Quarter: 2010Q3

REPORT INFORMATION
  Report Type: 
  Country: None (occurrence: None)
  Receive Date: 20100914
  Receipt Date: 20100901
  Transmission Date: 20110219
  Serious: Yes (Hospitalization)
  Sender: FDA-Public Use
  Company Number: DE-ELI_LILLY_AND_COMPANY-DE200806000680

PATIENT
  Sex: Male
  Weight: 87.8 kg

DRUGS (6)
  1. SOMATROPIN [Suspect]
     Indication: PITUITARY TUMOUR BENIGN
     Dosage: 0.8 D/F, UNKNOWN
     Route: 065
  2. IRBESARTAN [Concomitant]
     Indication: HYPERTENSION
     Dosage: 150 MG, UNK
     Route: 065
  3. ALLOPURINOL [Concomitant]
     Indication: ARTHRALGIA
     Dosage: 150 MG, UNK
     Route: 065
  4. HYDROCORTISONE [Concomitant]
     Indication: HYPOPITUITARISM
     Dosage: 25 MG, UNK
     Route: 065
  5. NEBIDO [Concomitant]
     Indication: HYPOPITUITARISM
     Dosage: 1000 MG, UNK
  6. COAPROVEL [Concomitant]
     Indication: HYPERTENSION
     Dosage: 225 MG, UNK

REACTIONS (1)
  - PITUITARY TUMOUR BENIGN [None]
